FAERS Safety Report 9980639 (Version 1)
Quarter: 2014Q1

REPORT INFORMATION
  Report Type: Spontaneous
  Country: US (occurrence: None)
  Receive Date: 20140305
  Receipt Date: 20140305
  Transmission Date: 20141002
  Serious: Yes (Hospitalization, Other)
  Sender: FDA-Public Use
  Company Number: None

PATIENT
  Age: 63 Year
  Sex: Female

DRUGS (9)
  1. INSULIN NPH [Suspect]
     Route: 058
  2. NOVOLOG [Suspect]
  3. METOPROLOL TARTRATE [Concomitant]
  4. SYNTHROID [Concomitant]
  5. SIMVASTATIN [Concomitant]
  6. SERTRALINE [Concomitant]
  7. FAMOTIDINE [Concomitant]
  8. NEPHRO-VITE [Concomitant]
  9. COUMADIN [Concomitant]

REACTIONS (3)
  - Hypoglycaemia [None]
  - Infection [None]
  - Decreased appetite [None]
